FAERS Safety Report 6417836-8 (Version None)
Quarter: 2009Q4

REPORT INFORMATION
  Report Type: 
  Country: None (occurrence: None)
  Receive Date: 20091028
  Receipt Date: 20091019
  Transmission Date: 20100525
  Serious: Yes (Death)
  Sender: FDA-Public Use
  Company Number: US-BAXTER-2009BH004820

PATIENT
  Age: 62 Year
  Sex: Male

DRUGS (13)
  1. ARALAST [Suspect]
     Indication: ALPHA-1 ANTI-TRYPSIN DEFICIENCY
     Route: 042
  2. FISH OIL [Concomitant]
  3. ALBUTEROL [Concomitant]
     Route: 055
  4. ATUSS DM [Concomitant]
  5. VITAMIN D [Concomitant]
  6. PROZAC [Concomitant]
  7. ADVAIR DISKUS 100/50 [Concomitant]
  8. HYDROCODONE [Concomitant]
  9. XOPENEX [Concomitant]
  10. OMEPRAZOLE [Concomitant]
  11. SIMVASTATIN [Concomitant]
  12. TIOTROPIUM BROMIDE [Concomitant]
  13. AMBIEN [Concomitant]

REACTIONS (8)
  - CHRONIC OBSTRUCTIVE PULMONARY DISEASE [None]
  - CONDITION AGGRAVATED [None]
  - CUBITAL TUNNEL SYNDROME [None]
  - GASTROOESOPHAGEAL REFLUX DISEASE [None]
  - LEFT VENTRICULAR HYPERTROPHY [None]
  - LORDOSIS [None]
  - NO THERAPEUTIC RESPONSE [None]
  - PNEUMONIA [None]
